FAERS Safety Report 7551928-5 (Version None)
Quarter: 2011Q2

REPORT INFORMATION
  Report Type: 
  Country: None (occurrence: None)
  Receive Date: 20110616
  Receipt Date: 20110606
  Transmission Date: 20111010
  Serious: Yes (Other)
  Sender: FDA-Public Use
  Company Number: US-BAYER-2011-011694

PATIENT
  Age: 50 Year
  Sex: Female
  Weight: 63.492 kg

DRUGS (12)
  1. XANAX [Concomitant]
     Dosage: 0.5 MG, TID
     Dates: start: 19960101
  2. AMBIEN CR [Concomitant]
     Dosage: 12.5 MG, QD
     Dates: start: 19960101
  3. PROZAC [Concomitant]
     Dosage: 20 MG, QD
     Dates: start: 19960101
  4. OVER THE COUNTER APPETITE SUPPRESSANTS [Concomitant]
  5. YAZ [Suspect]
     Indication: ACNE
  6. YAZ [Suspect]
     Indication: CONTRACEPTION
     Dosage: UNK
     Route: 048
     Dates: start: 20070101, end: 20090901
  7. AVONEX [Concomitant]
     Dosage: UNK
     Dates: start: 19990701
  8. TEGRETOL [Concomitant]
     Dosage: 100 MG, QID
     Dates: start: 20060101
  9. AMARYL [Concomitant]
     Dosage: UNK UNK, QD
     Route: 048
  10. ACIPHEX [Concomitant]
     Dosage: UNK UNK, QD
     Route: 048
  11. MISOPROSTOL [Concomitant]
     Dosage: UNK UNK, QD
     Route: 048
  12. CARAFATE [Concomitant]
     Dosage: UNK
     Route: 048

REACTIONS (2)
  - GALLBLADDER DISORDER [None]
  - CHOLECYSTITIS CHRONIC [None]
